FAERS Safety Report 21787107 (Version 6)
Quarter: 2023Q2

REPORT INFORMATION
  Report Type: Spontaneous
  Country: CA (occurrence: CA)
  Receive Date: 20221228
  Receipt Date: 20230525
  Transmission Date: 20230721
  Serious: Yes (Other)
  Sender: FDA-Public Use
  Company Number: CA-CELLTRION INC.-2022CA008688

PATIENT

DRUGS (15)
  1. INFLECTRA [Suspect]
     Active Substance: INFLIXIMAB-DYYB
     Indication: Crohn^s disease
     Dosage: 300 MG Q0,2,6 WEEKS, THEN EVERY 6 WEEKS.
     Route: 042
     Dates: start: 20220531, end: 20221103
  2. INFLECTRA [Suspect]
     Active Substance: INFLIXIMAB-DYYB
     Dosage: 300 MG Q0,2,6 WEEKS, THEN EVERY 6 WEEKS.
     Route: 042
     Dates: start: 20220531
  3. INFLECTRA [Suspect]
     Active Substance: INFLIXIMAB-DYYB
     Dosage: 300 MG, Q0,2,6 WEEKS, THEN EVERY 6 WEEKS.
     Route: 042
     Dates: start: 20220614
  4. INFLECTRA [Suspect]
     Active Substance: INFLIXIMAB-DYYB
     Dosage: 300 MG, Q 0,2,6 WEEKS, THEN EVERY 6 WEEKS
     Route: 042
     Dates: start: 20220712
  5. INFLECTRA [Suspect]
     Active Substance: INFLIXIMAB-DYYB
     Dosage: 300 MG, Q0,2,6 WEEKS, THEN EVERY 6 WEEKS.
     Route: 042
     Dates: start: 20220906
  6. INFLECTRA [Suspect]
     Active Substance: INFLIXIMAB-DYYB
     Dosage: 300 MG, Q0,2,6 WEEKS, THEN EVERY 6 WEEKS.
     Route: 042
     Dates: start: 20221103
  7. INFLECTRA [Suspect]
     Active Substance: INFLIXIMAB-DYYB
     Dosage: 600 MG EVERY 6 WEEK
     Route: 042
     Dates: start: 20221216
  8. INFLECTRA [Suspect]
     Active Substance: INFLIXIMAB-DYYB
     Dosage: 600 MG EVERY 6 WEEK
     Route: 042
     Dates: start: 20230126
  9. INFLECTRA [Suspect]
     Active Substance: INFLIXIMAB-DYYB
     Dosage: 600 MG EVERY 6 WEEK
     Route: 042
     Dates: start: 20230309
  10. INFLECTRA [Suspect]
     Active Substance: INFLIXIMAB-DYYB
     Dosage: 600 MG 10 WEEKS (9 WEEKS AND 5 DAYS), (EVERY 4 WEEKS)
     Route: 042
     Dates: start: 20230516
  11. BUPROPION [Concomitant]
     Active Substance: BUPROPION
     Dosage: 300 MG ,FREQUENCY-UNKNOWN
     Route: 065
  12. IRBESARTAN [Concomitant]
     Active Substance: IRBESARTAN
     Dosage: 75 MG , FREQUENCY-UNK, UNKNOWN
     Route: 065
  13. MARVELON [Concomitant]
     Active Substance: DESOGESTREL\ETHINYL ESTRADIOL
     Dosage: UNK, DOSE + FREQUENCY UNSPECIFIED
  14. VENLAFAXINE [Concomitant]
     Active Substance: VENLAFAXINE HYDROCHLORIDE
     Dosage: 75 MG , FREQUENCY-UNK, UNKNOWN
     Route: 065
  15. ZOPICLONE [Concomitant]
     Active Substance: ZOPICLONE
     Dosage: 7.5 MG, (1DF) FREQUENCY- UNKNOWN
     Route: 065

REACTIONS (15)
  - Cystitis interstitial [Not Recovered/Not Resolved]
  - Hypertension [Unknown]
  - Condition aggravated [Recovering/Resolving]
  - Therapeutic response shortened [Unknown]
  - Off label use [Unknown]
  - Off label use [Unknown]
  - Intentional product use issue [Unknown]
  - Inappropriate schedule of product administration [Unknown]
  - Aphthous ulcer [Not Recovered/Not Resolved]
  - Gingival pain [Not Recovered/Not Resolved]
  - Tachycardia [Not Recovered/Not Resolved]
  - Malaise [Not Recovered/Not Resolved]
  - Oral pain [Not Recovered/Not Resolved]
  - Arthralgia [Unknown]
  - Migraine [Unknown]

NARRATIVE: CASE EVENT DATE: 20220101
